FAERS Safety Report 26087667 (Version 1)
Quarter: 2025Q4

REPORT INFORMATION
  Report Type: Spontaneous
  Country: US (occurrence: None)
  Receive Date: 20251125
  Receipt Date: 20251125
  Transmission Date: 20260118
  Serious: Yes (Life-Threatening)
  Sender: FDA-CTU
  Company Number: None

PATIENT
  Age: 38 Year
  Sex: Female

DRUGS (1)
  1. DASATINIB [Suspect]
     Active Substance: DASATINIB
     Indication: Philadelphia positive chronic myeloid leukaemia
     Dosage: FREQUENCY : DAILY;?

REACTIONS (4)
  - Arrhythmia [None]
  - Palpitations [None]
  - Tremor [None]
  - Serotonin syndrome [None]
